FAERS Safety Report 5375608-X (Version None)
Quarter: 2007Q2

REPORT INFORMATION
  Report Type: 
  Country: None (occurrence: None)
  Receive Date: 20070629
  Receipt Date: 20070621
  Transmission Date: 20071010
  Serious: Yes (Hospitalization)
  Sender: FDA-Public Use
  Company Number: US-MERCK-0706USA04081

PATIENT
  Sex: Male

DRUGS (2)
  1. INVANZ [Suspect]
     Indication: PYREXIA
     Route: 042
     Dates: start: 20070101
  2. INVANZ [Suspect]
     Indication: INFECTION
     Route: 042
     Dates: start: 20070101

REACTIONS (1)
  - NO THERAPEUTIC RESPONSE [None]
